FAERS Safety Report 10015481 (Version 2)
Quarter: 2014Q2

REPORT INFORMATION
  Report Type: Report from Study
  Country: AU (occurrence: AU)
  Receive Date: 20140317
  Receipt Date: 20140401
  Transmission Date: 20141212
  Serious: Yes (Other)
  Sender: FDA-Public Use
  Company Number: AU-SA-2014SA030207

PATIENT
  Sex: Male

DRUGS (10)
  1. LANTUS [Suspect]
     Indication: PRODUCT USED FOR UNKNOWN INDICATION
     Route: 058
     Dates: start: 20040307
  2. IKOREL [Concomitant]
  3. LASIX [Concomitant]
  4. PLAVIX [Concomitant]
  5. NOTEN [Concomitant]
  6. PHYSIOTENS [Concomitant]
  7. LIPITOR [Concomitant]
  8. BYETTA [Concomitant]
  9. DIABEX [Concomitant]
  10. NASAL SPRAY [Concomitant]

REACTIONS (2)
  - Cholecystectomy [Unknown]
  - Coronary angioplasty [Unknown]
